FAERS Safety Report 21202268 (Version 1)
Quarter: 2022Q3

REPORT INFORMATION
  Report Type: Spontaneous
  Country: BR (occurrence: BR)
  Receive Date: 20220811
  Receipt Date: 20220811
  Transmission Date: 20221026
  Serious: Yes (Other)
  Sender: FDA-Public Use
  Company Number: BR-AMERICAN REGENT INC-2022002259

PATIENT
  Age: 51 Year
  Sex: Female

DRUGS (1)
  1. VENOFER [Suspect]
     Active Substance: IRON SUCROSE
     Indication: Iron deficiency
     Dosage: 2 AMPOULES (10 ML) (200 MG,1 IN 1 WK)
     Dates: start: 20220727, end: 20220727

REACTIONS (8)
  - Retching [Unknown]
  - Vertigo [Unknown]
  - Fatigue [Unknown]
  - Chromaturia [Unknown]
  - Head discomfort [Unknown]
  - Syncope [Unknown]
  - Dizziness [Unknown]
  - Product preparation error [Unknown]

NARRATIVE: CASE EVENT DATE: 20220727
